FAERS Safety Report 8133506-2 (Version None)
Quarter: 2012Q1

REPORT INFORMATION
  Report Type: 
  Country: None (occurrence: None)
  Receive Date: 20120213
  Receipt Date: 20120203
  Transmission Date: 20120608
  Serious: Yes (Hospitalization)
  Sender: FDA-Public Use
  Company Number: DE-ABBOTT-12P-062-0901878-00

PATIENT
  Sex: Female

DRUGS (2)
  1. OINTMENT [Concomitant]
     Indication: PRODUCT USED FOR UNKNOWN INDICATION
  2. HUMIRA [Suspect]
     Indication: PSORIASIS
     Route: 058
     Dates: start: 20110801, end: 20120117

REACTIONS (7)
  - LYMPHADENOPATHY [None]
  - SWELLING FACE [None]
  - ERYTHEMA [None]
  - EYE DISORDER [None]
  - ECZEMA [None]
  - OEDEMA GENITAL [None]
  - GENITAL ERYTHEMA [None]
